FAERS Safety Report 7434169-1 (Version None)
Quarter: 2011Q2

REPORT INFORMATION
  Report Type: 
  Country: None (occurrence: None)
  Receive Date: 20110425
  Receipt Date: 20110414
  Transmission Date: 20111010
  Serious: No
  Sender: FDA-Public Use
  Company Number: US-PFIZER INC-2011084841

PATIENT
  Sex: Female

DRUGS (2)
  1. ALDACTONE [Suspect]
     Indication: ALOPECIA
     Dosage: 100 MG, 1X/DAY
     Route: 048
     Dates: start: 20060101
  2. PREDNISONE [Concomitant]
     Indication: RASH

REACTIONS (1)
  - DRUG INEFFECTIVE [None]
